FAERS Safety Report 15704172 (Version 1)
Quarter: 2018Q4

REPORT INFORMATION
  Report Type: Spontaneous
  Country: US (occurrence: US)
  Receive Date: 20181127
  Receipt Date: 20181127
  Transmission Date: 20190205
  Serious: Yes (Other)
  Sender: FDA-Public Use
  Company Number: None

PATIENT
  Age: 36 Year
  Sex: Female
  Weight: 83.7 kg

DRUGS (2)
  1. DEXTROAMPHET SACCHARAT, AMPHET ASPARTATE, DEXTROAMPHET SULFATE AND AMPHET SULFAT [Suspect]
     Active Substance: AMPHETAMINE ASPARTATE\AMPHETAMINE SULFATE\DEXTROAMPHETAMINE SACCHARATE\DEXTROAMPHETAMINE SULFATE
     Indication: NARCOLEPSY
     Dosage: ?          QUANTITY:90 DF DOSAGE FORM;?
     Route: 048
  2. ADDERALL [Concomitant]
     Active Substance: AMPHETAMINE ASPARTATE\AMPHETAMINE SULFATE\DEXTROAMPHETAMINE SACCHARATE\DEXTROAMPHETAMINE SULFATE

REACTIONS (13)
  - Hypoaesthesia [None]
  - Pain in extremity [None]
  - Diarrhoea [None]
  - Anxiety [None]
  - Gastrointestinal hypermotility [None]
  - Disturbance in attention [None]
  - Dehydration [None]
  - Migraine [None]
  - Thinking abnormal [None]
  - Gastrointestinal disorder [None]
  - Mood swings [None]
  - Depression [None]
  - Tachyphrenia [None]

NARRATIVE: CASE EVENT DATE: 20181120
